FAERS Safety Report 7759892-0 (Version None)
Quarter: 2011Q3

REPORT INFORMATION
  Report Type: 
  Country: None (occurrence: None)
  Receive Date: 20110919
  Receipt Date: 20110913
  Transmission Date: 20111222
  Serious: Yes (Other)
  Sender: FDA-Public Use
  Company Number: CH-MERCK-1109USA01448

PATIENT
  Age: 55 Year
  Sex: Male

DRUGS (7)
  1. CALCIMAGON D3 [Concomitant]
     Dosage: LOND TERM
     Route: 065
  2. NEXIUM [Concomitant]
     Dosage: LONG TERM
     Route: 065
  3. FOSAMAX [Suspect]
     Indication: OSTEOPOROSIS
     Route: 048
     Dates: start: 20110602, end: 20110721
  4. ESCITALOPRAM [Concomitant]
     Dosage: LONG TERM
     Route: 065
  5. KEPPRA [Concomitant]
     Dosage: LONG TERM
     Route: 065
  6. METHADONE HYDROCHLORIDE [Concomitant]
     Dosage: LONF TERM
     Route: 065
  7. LORAZEPAM [Concomitant]
     Dosage: LONG TERM
     Route: 065

REACTIONS (2)
  - SOMNOLENCE [None]
  - ASTHENIA [None]
